FAERS Safety Report 5748964-8 (Version None)
Quarter: 2008Q2

REPORT INFORMATION
  Report Type: 
  Country: None (occurrence: None)
  Receive Date: 20080527
  Receipt Date: 20080521
  Transmission Date: 20081010
  Serious: Yes (Disabling)
  Sender: FDA-Public Use
  Company Number: GB-RANBAXY-2008RR-15323

PATIENT

DRUGS (2)
  1. SIMVASTATIN 10MG TABLETS [Suspect]
     Indication: HYPERCHOLESTEROLAEMIA
     Dosage: 20 MG, UNK
     Route: 048
     Dates: end: 20070401
  2. AZATHIOPRINE [Concomitant]
     Dosage: 50 MG, UNK
     Route: 048

REACTIONS (2)
  - COUGH [None]
  - SLEEP DISORDER [None]
